FAERS Safety Report 9735552 (Version 2)
Quarter: 2015Q3

REPORT INFORMATION
  Report Type: Spontaneous
  Country: US (occurrence: US)
  Receive Date: 20131206
  Receipt Date: 20150804
  Transmission Date: 20151125
  Serious: No
  Sender: FDA-Public Use
  Company Number: US-GILEAD-2009-0023657

PATIENT
  Age: 39 Year
  Sex: Female

DRUGS (5)
  1. MYSOLINE [Concomitant]
     Active Substance: PRIMIDONE
  2. LETAIRIS [Suspect]
     Active Substance: AMBRISENTAN
     Indication: PULMONARY ARTERIAL HYPERTENSION
  3. COUMADIN [Concomitant]
     Active Substance: WARFARIN SODIUM
  4. IRON [Concomitant]
     Active Substance: IRON
  5. DILANTIN [Concomitant]
     Active Substance: PHENYTOIN

REACTIONS (1)
  - Flushing [Not Recovered/Not Resolved]
